FAERS Safety Report 7602756-3 (Version None)
Quarter: 2011Q3

REPORT INFORMATION
  Report Type: 
  Country: None (occurrence: None)
  Receive Date: 20110712
  Receipt Date: 20110706
  Transmission Date: 20111222
  Serious: Yes (Death, Life-Threatening, Hospitalization, Disabling)
  Sender: FDA-Public Use
  Company Number: JP-ASTELLAS-2010JP007577

PATIENT
  Age: 81 Year
  Sex: Male
  Weight: 35.6 kg

DRUGS (30)
  1. TACROLIMUS [Suspect]
     Dosage: 1 MG, BID
     Route: 048
     Dates: start: 20100921, end: 20100924
  2. PENTASA [Concomitant]
     Indication: COLITIS ULCERATIVE
     Dosage: 3000 MG, UNKNOWN/D
     Route: 048
     Dates: start: 20100810, end: 20100827
  3. RABEPRAZOLE SODIUM [Concomitant]
     Dosage: 20 MG, UNKNOWN/D
     Route: 048
     Dates: end: 20100927
  4. VANCOMYCIN HYCHLORIDE [Concomitant]
     Dosage: 2000 MG, UNKNOWN/D
     Route: 048
     Dates: start: 20100921, end: 20100927
  5. CEFMETAZOLE SODIUM [Concomitant]
     Dosage: 2000 MG, UNKNOWN/D
     Route: 065
     Dates: end: 20100924
  6. OMEPRAZOLE [Concomitant]
     Dosage: 40 MG, UNKNOWN/D
     Route: 065
     Dates: start: 20101006, end: 20101018
  7. LOCOID [Concomitant]
     Indication: STEVENS-JOHNSON SYNDROME
     Route: 061
  8. TACROLIMUS [Suspect]
     Indication: COLITIS ULCERATIVE
     Dosage: 5 MG, BID
     Route: 048
     Dates: start: 20101019, end: 20101219
  9. TRIMEBUTINE MALEATE [Concomitant]
     Dosage: 300 MG, UNKNOWN/D
     Route: 048
     Dates: start: 20101002
  10. AZUNOL [Concomitant]
     Indication: STEVENS-JOHNSON SYNDROME
     Route: 061
  11. PREDNISOLONE [Concomitant]
     Dosage: 20 MG, UNKNOWN/D
     Route: 048
     Dates: start: 20100910, end: 20100929
  12. SULFAMETHOXAZOLE [Concomitant]
     Dosage: 2000 MG, UNKNOWN/D
     Route: 048
  13. FOSAMAC [Concomitant]
     Dosage: 5 MG, UNKNOWN/D
     Route: 048
  14. TACROLIMUS [Suspect]
     Dosage: 4 MG, BID
     Route: 048
     Dates: start: 20100928, end: 20101001
  15. PENTASA [Concomitant]
     Dosage: 1000 MG, UNKNOWN/D
     Route: 054
     Dates: start: 20100812
  16. RABEPRAZOLE SODIUM [Concomitant]
     Dosage: 20 MG, UNKNOWN/D
     Route: 048
     Dates: start: 20101113, end: 20101122
  17. CEFMETAZOLE SODIUM [Concomitant]
     Dosage: 2000 MG, UNKNOWN/D
     Route: 065
     Dates: start: 20101003, end: 20101009
  18. ELENTAL [Concomitant]
     Dosage: 160000 MG, UNKNOWN/D
     Route: 048
  19. DIACORT [Concomitant]
     Indication: STEVENS-JOHNSON SYNDROME
     Route: 061
  20. TACROLIMUS [Suspect]
     Dosage: 1.5 MG, BID
     Route: 048
     Dates: start: 20100924, end: 20100928
  21. TACROLIMUS [Suspect]
     Dosage: 2 MG, BID
     Route: 048
     Dates: start: 20101012, end: 20101019
  22. PREDNISOLONE [Concomitant]
     Dosage: 15 MG, UNKNOWN/D
     Route: 048
     Dates: start: 20100930, end: 20101004
  23. PREDNISOLONE [Concomitant]
     Indication: STEVENS-JOHNSON SYNDROME
     Route: 042
  24. PREDNISOLONE [Concomitant]
     Indication: COLITIS ULCERATIVE
     Dosage: 40 MG, UNKNOWN/D
     Route: 048
     Dates: start: 20100825, end: 20100902
  25. TACROLIMUS [Suspect]
     Dosage: 3 MG, BID
     Route: 048
     Dates: start: 20101001, end: 20101012
  26. PENTASA [Concomitant]
     Dosage: 4000 MG, UNKNOWN/D
     Route: 048
     Dates: start: 20100828
  27. PREDNISOLONE [Concomitant]
     Dosage: 10 MG, UNKNOWN/D
     Route: 048
     Dates: start: 20101010
  28. PREDNISOLONE [Concomitant]
     Dosage: 30 MG, UNKNOWN/D
     Route: 065
     Dates: start: 20100903, end: 20100909
  29. PREDNISOLONE [Concomitant]
     Dosage: 12.5 MG, UNKNOWN/D
     Route: 048
     Dates: start: 20101005, end: 20101009
  30. VENOGLOBULIN [Concomitant]
     Indication: STEVENS-JOHNSON SYNDROME
     Route: 042

REACTIONS (9)
  - BLOOD CREATININE INCREASED [None]
  - BLOOD CREATINE PHOSPHOKINASE INCREASED [None]
  - HYPERAMYLASAEMIA [None]
  - SEPSIS [None]
  - C-REACTIVE PROTEIN INCREASED [None]
  - PLATELET COUNT DECREASED [None]
  - WHITE BLOOD CELL COUNT DECREASED [None]
  - BLOOD UREA INCREASED [None]
  - STEVENS-JOHNSON SYNDROME [None]
